FAERS Safety Report 6508306-7 (Version None)
Quarter: 2009Q4

REPORT INFORMATION
  Report Type: 
  Country: None (occurrence: None)
  Receive Date: 20091221
  Receipt Date: 20081201
  Transmission Date: 20100525
  Serious: No
  Sender: FDA-Public Use
  Company Number: US-ASTRAZENECA-2008UW25118

PATIENT
  Age: 68 Year
  Sex: Female
  Weight: 81.6 kg

DRUGS (10)
  1. CRESTOR [Suspect]
     Indication: HYPERCHOLESTEROLAEMIA
     Route: 048
     Dates: end: 20080801
  2. CRESTOR [Suspect]
     Route: 048
     Dates: start: 20081101
  3. ACTOS [Concomitant]
     Indication: DIABETES MELLITUS
  4. METFORMIN HCL [Concomitant]
  5. PLENDIL [Concomitant]
  6. ATENOLOL [Concomitant]
  7. BABY ASPIRIN [Concomitant]
  8. CELEXA [Concomitant]
  9. LOTENSIN [Concomitant]
  10. COLESTID [Concomitant]
     Indication: BLOOD CHOLESTEROL INCREASED
     Route: 048

REACTIONS (3)
  - BLOOD BILIRUBIN INCREASED [None]
  - BLOOD CHOLESTEROL INCREASED [None]
  - HEPATIC ENZYME INCREASED [None]
